FAERS Safety Report 4365865-0 (Version None)
Quarter: 2004Q2

REPORT INFORMATION
  Report Type: 
  Country: None (occurrence: None)
  Receive Date: 20040520
  Receipt Date: 20040510
  Transmission Date: 20050107
  Serious: Yes (Hospitalization)
  Sender: FDA-Public Use
  Company Number: BE-JNJFOC-20040501831

PATIENT
  Age: 65 Year
  Sex: Female

DRUGS (3)
  1. REMICADE [Suspect]
     Indication: RHEUMATOID ARTHRITIS
     Dosage: 3 MG/KG, INTRAVENOUS
     Route: 042
     Dates: start: 20021001
  2. METHOTREXATE [Concomitant]
  3. PREDNISONE [Concomitant]

REACTIONS (4)
  - ARTHROPATHY [None]
  - INJURY [None]
  - LOCALISED OSTEOARTHRITIS [None]
  - ROTATOR CUFF SYNDROME [None]
